FAERS Safety Report 5677015-9 (Version None)
Quarter: 2008Q1

REPORT INFORMATION
  Report Type: 
  Country: None (occurrence: None)
  Receive Date: 20080324
  Receipt Date: 20051117
  Transmission Date: 20080703
  Serious: Yes (Hospitalization)
  Sender: FDA-Public Use
  Company Number: US-ABBOTT-05P-163-0317751-00

PATIENT
  Sex: Female

DRUGS (4)
  1. RITONAVIR ORAL SOLUTION [Suspect]
     Indication: HIV INFECTION
     Dosage: 420 MG/3ML
     Route: 048
  2. TIPRANAVIR [Suspect]
     Indication: HIV INFECTION
     Route: 048
  3. TRUVADA [Concomitant]
     Indication: HIV INFECTION
     Route: 048
  4. DIDANOSINE [Concomitant]
     Indication: HIV INFECTION

REACTIONS (4)
  - ABDOMINAL PAIN [None]
  - BACK PAIN [None]
  - POLLAKIURIA [None]
  - PRURITUS [None]
